FAERS Safety Report 8615219-3 (Version None)
Quarter: 2012Q3

REPORT INFORMATION
  Report Type: 
  Country: None (occurrence: None)
  Receive Date: 20120823
  Receipt Date: 20120816
  Transmission Date: 20120928
  Serious: Yes (Death)
  Sender: FDA-Public Use
  Company Number: TN-SANOFI-AVENTIS-2012SA059350

PATIENT
  Age: 60 Year
  Sex: Male

DRUGS (8)
  1. INSULIN [Concomitant]
     Route: 058
     Dates: end: 20120704
  2. HYPOTEN [Concomitant]
     Route: 048
     Dates: end: 20120704
  3. PERINDOPRIL ERBUMINE [Concomitant]
     Route: 048
     Dates: end: 20120704
  4. PLAVIX [Suspect]
     Route: 048
     Dates: start: 20120227, end: 20120622
  5. ATORVASTATIN [Concomitant]
     Route: 048
     Dates: end: 20120704
  6. INSULATARD NPH HUMAN [Concomitant]
     Route: 058
     Dates: end: 20120704
  7. ASPIRIN [Concomitant]
     Indication: STENT PLACEMENT
     Route: 048
     Dates: end: 20120704
  8. FAMODINE [Concomitant]
     Route: 048
     Dates: end: 20120704

REACTIONS (1)
  - DEATH [None]
